FAERS Safety Report 7111082-0 (Version None)
Quarter: 2010Q4

REPORT INFORMATION
  Report Type: 
  Country: None (occurrence: None)
  Receive Date: 20101118
  Receipt Date: 20101108
  Transmission Date: 20110411
  Serious: Yes (Death)
  Sender: FDA-Public Use
  Company Number: US-MYLANLABS-2010S1020470

PATIENT
  Sex: Male

DRUGS (2)
  1. FENTANYL [Suspect]
     Indication: PAIN
     Route: 062
     Dates: end: 20071114
  2. FENTANYL [Suspect]
     Route: 062
     Dates: end: 20071114

REACTIONS (2)
  - NARCOTIC INTOXICATION [None]
  - OVERDOSE [None]
